FAERS Safety Report 21554089 (Version 1)
Quarter: 2022Q4

REPORT INFORMATION
  Report Type: Spontaneous
  Country: US (occurrence: None)
  Receive Date: 20221104
  Receipt Date: 20221104
  Transmission Date: 20230113
  Serious: Yes (Other)
  Sender: FDA-Public Use
  Company Number: US-ROCHE-3208352

PATIENT
  Age: 24 Year
  Sex: Female
  Weight: 99.880 kg

DRUGS (1)
  1. XOLAIR [Suspect]
     Active Substance: OMALIZUMAB
     Indication: Urticaria
     Route: 058
     Dates: start: 20220726

REACTIONS (1)
  - Blister [Unknown]

NARRATIVE: CASE EVENT DATE: 20221014
